FAERS Safety Report 24611923 (Version 1)
Quarter: 2024Q4

REPORT INFORMATION
  Report Type: Spontaneous
  Country: DE (occurrence: DE)
  Receive Date: 20241113
  Receipt Date: 20241113
  Transmission Date: 20250114
  Serious: Yes (Other)
  Sender: AMGEN
  Company Number: DE-002147023-NVSC2024DE216621

PATIENT
  Sex: Female

DRUGS (1)
  1. AIMOVIG [Suspect]
     Active Substance: ERENUMAB-AOOE
     Indication: Migraine
     Dosage: 70 MG, QMO (PEN)
     Route: 065
     Dates: start: 202312

REACTIONS (5)
  - Thrombosis [Unknown]
  - Myocardial infarction [Unknown]
  - Stress [Unknown]
  - Migraine with aura [Unknown]
  - Headache [Unknown]

NARRATIVE: CASE EVENT DATE: 20241022
